FAERS Safety Report 12187430 (Version 1)
Quarter: 2016Q1

REPORT INFORMATION
  Report Type: Spontaneous
  Country: US (occurrence: None)
  Receive Date: 20160316
  Receipt Date: 20160316
  Transmission Date: 20160526
  Serious: Yes (Other)
  Sender: FDA-Public Use
  Company Number: None

PATIENT
  Age: 57 Year
  Sex: Female

DRUGS (9)
  1. GADAVIST [Suspect]
     Active Substance: GADOBUTROL
     Indication: SCAN WITH CONTRAST
     Dates: start: 20160129, end: 20160129
  2. CLOTRIMAZOLE. [Concomitant]
     Active Substance: CLOTRIMAZOLE
  3. EPIVIR [Concomitant]
     Active Substance: LAMIVUDINE
  4. BENADRYL [Concomitant]
     Active Substance: DIPHENHYDRAMINE HYDROCHLORIDE
  5. AMLACTIN [Concomitant]
     Active Substance: AMMONIUM LACTATE
  6. ALBUTEROL. [Concomitant]
     Active Substance: ALBUTEROL
  7. GABAPENTIN. [Concomitant]
     Active Substance: GABAPENTIN
  8. MECLIZINE [Concomitant]
     Active Substance: MECLIZINE HYDROCHLORIDE
  9. FLUXTONINE [Concomitant]

REACTIONS (4)
  - Urticaria [None]
  - Erythema [None]
  - Cardio-respiratory arrest [None]
  - Dyspnoea [None]

NARRATIVE: CASE EVENT DATE: 20160129
